FAERS Safety Report 8896153 (Version 1)
Quarter: 2012Q4

REPORT INFORMATION
  Report Type: 
  Country: IT (occurrence: IT)
  Receive Date: 20121108
  Receipt Date: 20121108
  Transmission Date: 20130627
  Serious: Yes (Hospitalization)
  Sender: FDA-Public Use
  Company Number: IT-MYLANLABS-2012S1022359

PATIENT
  Age: 82 Year
  Sex: Female

DRUGS (15)
  1. LEVOFLOXACIN [Suspect]
     Indication: HYPERPYREXIA
     Route: 048
     Dates: start: 20120801, end: 20120810
  2. CEFTRIAXONE [Suspect]
     Indication: HYPERPYREXIA
     Route: 030
     Dates: start: 20120811, end: 20120823
  3. MICARDIS PLUS [Concomitant]
     Indication: CARDIAC FAILURE
     Dates: start: 20080214, end: 20121012
  4. CARDIOASPIRIN [Concomitant]
     Indication: CARDIAC FAILURE
     Dates: start: 20080214, end: 20121012
  5. KEPPRA [Concomitant]
     Indication: PRODUCT USED FOR UNKNOWN INDICATION
  6. SPIRIVA [Concomitant]
     Indication: PRODUCT USED FOR UNKNOWN INDICATION
  7. SERETIDE [Concomitant]
     Indication: PRODUCT USED FOR UNKNOWN INDICATION
  8. CATAPRESAN [Concomitant]
     Indication: PRODUCT USED FOR UNKNOWN INDICATION
     Route: 062
  9. TOTALIP [Concomitant]
     Indication: PRODUCT USED FOR UNKNOWN INDICATION
  10. ZYLORIC [Concomitant]
     Indication: PRODUCT USED FOR UNKNOWN INDICATION
     Dates: end: 20120821
  11. ZANEDIP [Concomitant]
     Indication: PRODUCT USED FOR UNKNOWN INDICATION
  12. LASIX [Concomitant]
     Indication: PRODUCT USED FOR UNKNOWN INDICATION
  13. FERRO-GRAD [Concomitant]
     Indication: ANAEMIA
     Dates: end: 20120821
  14. ENALAPRIL [Concomitant]
     Indication: PRODUCT USED FOR UNKNOWN INDICATION
  15. OMEPRAZOLE [Concomitant]
     Indication: PRODUCT USED FOR UNKNOWN INDICATION

REACTIONS (2)
  - Acute generalised exanthematous pustulosis [Recovering/Resolving]
  - Renal impairment [Recovered/Resolved]
